FAERS Safety Report 6225179-0 (Version None)
Quarter: 2009Q2

REPORT INFORMATION
  Report Type: 
  Country: None (occurrence: None)
  Receive Date: 20090612
  Receipt Date: 20090409
  Transmission Date: 20091009
  Serious: No
  Sender: FDA-Public Use
  Company Number: US-ABBOTT-09P-163-0567487-00

PATIENT
  Sex: Female
  Weight: 65.83 kg

DRUGS (5)
  1. HUMIRA [Suspect]
     Indication: PSORIATIC ARTHROPATHY
     Route: 058
     Dates: start: 20080801, end: 20090101
  2. HUMIRA [Suspect]
     Route: 058
     Dates: start: 20090101, end: 20090301
  3. HUMIRA [Suspect]
     Route: 058
     Dates: start: 20090404
  4. METHOTREXATE [Concomitant]
     Indication: PSORIATIC ARTHROPATHY
     Route: 048
  5. VERAPAMIL [Concomitant]
     Indication: HYPERTENSION
     Route: 048

REACTIONS (2)
  - NASOPHARYNGITIS [None]
  - PSORIATIC ARTHROPATHY [None]
